FAERS Safety Report 10721706 (Version 1)
Quarter: 2015Q1

REPORT INFORMATION
  Report Type: Report from Study
  Country: DE (occurrence: DE)
  Receive Date: 20150119
  Receipt Date: 20150119
  Transmission Date: 20150721
  Serious: Yes (Hospitalization, Other)
  Sender: FDA-Public Use
  Company Number: DE-GILEAD-2015-0131929

PATIENT
  Age: 33 Year
  Sex: Female
  Weight: 50 kg

DRUGS (11)
  1. ESOMEPRAZOLE [Concomitant]
     Active Substance: ESOMEPRAZOLE
  2. FALITHROM [Concomitant]
     Active Substance: PHENPROCOUMON
  3. METOHEXAL SUCC [Concomitant]
     Active Substance: METOPROLOL SUCCINATE
  4. DACLATASVIR [Suspect]
     Active Substance: DACLATASVIR
     Indication: HEPATITIS C
     Dosage: 60 MG, QD
     Route: 048
     Dates: start: 20141010, end: 20150101
  5. PREDNISOLON                        /00016201/ [Concomitant]
     Active Substance: PREDNISOLONE
  6. ATACAND [Concomitant]
     Active Substance: CANDESARTAN CILEXETIL
  7. SOFOSBUVIR [Suspect]
     Active Substance: SOFOSBUVIR
     Indication: HEPATITIS C
     Dosage: 400 MG, QD
     Route: 048
     Dates: start: 20141010, end: 20150101
  8. RENVELA [Concomitant]
     Active Substance: SEVELAMER CARBONATE
  9. CLEXANE [Concomitant]
     Active Substance: ENOXAPARIN SODIUM
  10. DEKRISTOL [Concomitant]
     Active Substance: CHOLECALCIFEROL
  11. OSVAREN [Concomitant]
     Active Substance: CALCIUM ACETATE\MAGNESIUM CARBONATE

REACTIONS (4)
  - Headache [Not Recovered/Not Resolved]
  - Blood pressure increased [Not Recovered/Not Resolved]
  - Dizziness [Not Recovered/Not Resolved]
  - Shunt occlusion [Recovered/Resolved]

NARRATIVE: CASE EVENT DATE: 20141024
